FAERS Safety Report 10015917 (Version 4)
Quarter: 2014Q3

REPORT INFORMATION
  Report Type: Spontaneous
  Country: US (occurrence: US)
  Receive Date: 20140317
  Receipt Date: 20140916
  Transmission Date: 20150326
  Serious: Yes (Hospitalization, Other)
  Sender: FDA-Public Use
  Company Number: US-BAYER-2014-039630

PATIENT
  Age: 24 Year
  Sex: Female
  Weight: 56.69 kg

DRUGS (2)
  1. MIRENA [Suspect]
     Active Substance: LEVONORGESTREL
     Indication: MENORRHAGIA
  2. MIRENA [Suspect]
     Active Substance: LEVONORGESTREL
     Indication: CONTRACEPTION
     Dosage: 20 MCG/24HR, CONT
     Route: 015
     Dates: start: 200904, end: 201111

REACTIONS (17)
  - Uterine perforation [Not Recovered/Not Resolved]
  - Genital haemorrhage [Not Recovered/Not Resolved]
  - Device issue [None]
  - Migraine [Not Recovered/Not Resolved]
  - Vision blurred [Not Recovered/Not Resolved]
  - Uterine scar [Not Recovered/Not Resolved]
  - Off label use [None]
  - Infertility female [Not Recovered/Not Resolved]
  - Emotional distress [None]
  - Dysmenorrhoea [Not Recovered/Not Resolved]
  - Mental disorder [None]
  - Dizziness [Not Recovered/Not Resolved]
  - Injury [Not Recovered/Not Resolved]
  - Pain [Not Recovered/Not Resolved]
  - Pelvic inflammatory disease [Not Recovered/Not Resolved]
  - Menometrorrhagia [Not Recovered/Not Resolved]
  - Anxiety [None]
